FAERS Safety Report 4498717-6 (Version None)
Quarter: 2004Q4

REPORT INFORMATION
  Report Type: 
  Country: None (occurrence: None)
  Receive Date: 20041108
  Receipt Date: 20041025
  Transmission Date: 20050328
  Serious: Yes (Other)
  Sender: FDA-Public Use
  Company Number: 2004083547

PATIENT
  Sex: Male

DRUGS (2)
  1. PHENYTOIN SODIUM [Suspect]
     Indication: ILL-DEFINED DISORDER
  2. CARBAMAZEPINE [Suspect]
     Indication: ILL-DEFINED DISORDER

REACTIONS (2)
  - APLASTIC ANAEMIA [None]
  - RASH [None]
